FAERS Safety Report 9003427 (Version 1)
Quarter: 2013Q1

REPORT INFORMATION
  Report Type: Spontaneous
  Country: ES (occurrence: ES)
  Receive Date: 20130108
  Receipt Date: 20130108
  Transmission Date: 20140127
  Serious: Yes (Other)
  Sender: FDA-Public Use
  Company Number: ES-GLAXOSMITHKLINE-B0856754A

PATIENT
  Age: 36 Year
  Sex: Male
  Weight: 77 kg

DRUGS (13)
  1. ZYLORIC [Concomitant]
  2. ATROVENT [Concomitant]
  3. PULMICORT [Concomitant]
  4. EMEND [Concomitant]
  5. BARACLUDE [Concomitant]
  6. ZAVEDOS [Concomitant]
  7. PANTECTA [Concomitant]
  8. CITARABINA [Concomitant]
  9. MEROPENEM [Concomitant]
  10. VANCOMYCIN [Concomitant]
  11. ZOFRAN [Suspect]
     Indication: PRODUCT USED FOR UNKNOWN INDICATION
     Route: 042
     Dates: start: 20121015
  12. FLUMIL [Concomitant]
     Route: 048
  13. ACICLOVIR [Concomitant]
     Route: 042

REACTIONS (1)
  - Long QT syndrome [Recovered/Resolved]
